FAERS Safety Report 4860324-0 (Version None)
Quarter: 2005Q4

REPORT INFORMATION
  Report Type: 
  Country: None (occurrence: None)
  Receive Date: 20051215
  Receipt Date: 20051208
  Transmission Date: 20060501
  Serious: Yes (Other)
  Sender: FDA-Public Use
  Company Number: 05-NIP00137

PATIENT

DRUGS (4)
  1. NIPENT [Suspect]
     Indication: BONE MARROW CONDITIONING REGIMEN
     Dosage: 40 MG/M2 (40 MG/M2, QD)
  2. TBI [Suspect]
     Dosage: 600 CGY (IN 3 FRACTIONS)
  3. TACROLIMUS (TACROLIMUS) (TACROLIMUS) [Suspect]
  4. PHOTOPHORESIS [Concomitant]

REACTIONS (2)
  - CAPILLARY LEAK SYNDROME [None]
  - ORGAN FAILURE [None]
